FAERS Safety Report 14170540 (Version 2)
Quarter: 2017Q4

REPORT INFORMATION
  Report Type: Spontaneous
  Country: FI (occurrence: FI)
  Receive Date: 20171108
  Receipt Date: 20171113
  Transmission Date: 20180321
  Serious: Yes (Other)
  Sender: FDA-Public Use
  Company Number: PHHY2017FI165030

PATIENT
  Sex: Female

DRUGS (1)
  1. AZARGA [Suspect]
     Active Substance: BRINZOLAMIDE\TIMOLOL MALEATE
     Indication: GLAUCOMA
     Dosage: UNK
     Route: 047
     Dates: start: 2013, end: 201710

REACTIONS (8)
  - Eyelid rash [Recovered/Resolved]
  - Conjunctival irritation [Recovered/Resolved]
  - Eyelid oedema [Recovered/Resolved]
  - Optic disc disorder [Recovered/Resolved]
  - Insomnia [Recovered/Resolved]
  - Erythema of eyelid [Recovered/Resolved]
  - Pruritus [Recovered/Resolved]
  - Toxic skin eruption [Recovered/Resolved]

NARRATIVE: CASE EVENT DATE: 201705
